FAERS Safety Report 15353312 (Version 1)
Quarter: 2018Q3

REPORT INFORMATION
  Report Type: Spontaneous
  Country: DE (occurrence: DE)
  Receive Date: 20180905
  Receipt Date: 20180905
  Transmission Date: 20181010
  Serious: Yes (Death)
  Sender: FDA-Public Use
  Company Number: DE-FRESENIUS KABI-FK201809319

PATIENT
  Age: 98 Year
  Sex: Male

DRUGS (2)
  1. MORPHINE (MANUFACTURER UNKNOWN) [Suspect]
     Active Substance: MORPHINE
     Indication: PALLIATIVE CARE
     Dosage: INFUSION OR BOLUS
     Route: 042
  2. OXYCODONE [Suspect]
     Active Substance: OXYCODONE
     Indication: PALLIATIVE CARE
     Route: 065

REACTIONS (1)
  - Toxicity to various agents [Fatal]
